FAERS Safety Report 7837729 (Version 3)
Quarter: 2014Q1

REPORT INFORMATION
  Report Type: Spontaneous
  Country: US (occurrence: US)
  Receive Date: 20110302
  Receipt Date: 20140318
  Transmission Date: 20141002
  Serious: Yes (Hospitalization, Other)
  Sender: FDA-Public Use
  Company Number: US-PFIZER INC-2010034442

PATIENT
  Age: 61 Year
  Sex: Female

DRUGS (5)
  1. DILANTIN-125 [Suspect]
     Dosage: UNK
  2. ROCEPHIN [Concomitant]
     Indication: UROSEPSIS
     Dosage: UNK
     Route: 042
     Dates: start: 20070913
  3. ZOSYN [Concomitant]
     Indication: UROSEPSIS
     Dosage: UNK
     Route: 042
     Dates: start: 200710
  4. VANCOMYCIN [Concomitant]
     Indication: UROSEPSIS
     Dosage: UNK
     Route: 042
     Dates: start: 20070913
  5. ZYVOX [Concomitant]
     Indication: UROSEPSIS
     Dosage: UNK
     Route: 042
     Dates: start: 200710

REACTIONS (1)
  - Stevens-Johnson syndrome [Unknown]
